FAERS Safety Report 8737637 (Version 2)
Quarter: 2013Q4

REPORT INFORMATION
  Report Type: Spontaneous
  Country: US (occurrence: US)
  Receive Date: 20120822
  Receipt Date: 20131101
  Transmission Date: 20140711
  Serious: No
  Sender: FDA-Public Use
  Company Number: US-009507513-1207USA009229

PATIENT
  Age: 56 Year
  Sex: Male

DRUGS (9)
  1. VICTRELIS [Suspect]
     Dosage: 800 MG, TID EVERY 7-9 HOURS
     Dates: start: 201202
  2. RIBAVIRIN (WARRICK) [Suspect]
  3. PEG-INTRON [Suspect]
  4. CYANOCOBALAMIN [Concomitant]
  5. LORAZEPAM [Concomitant]
  6. ACIPHEX [Concomitant]
  7. ADVIL [Concomitant]
  8. CARAFATE [Concomitant]
  9. ONDANSETRON [Concomitant]

REACTIONS (4)
  - Rash [Unknown]
  - Pain [Unknown]
  - Oesophageal pain [Unknown]
  - Nausea [Unknown]
